FAERS Safety Report 7371335-8 (Version None)
Quarter: 2011Q1

REPORT INFORMATION
  Report Type: 
  Country: None (occurrence: None)
  Receive Date: 20110324
  Receipt Date: 20110222
  Transmission Date: 20110831
  Serious: Yes (Other)
  Sender: FDA-Public Use
  Company Number: US-BAYER-201031704NA

PATIENT
  Sex: Female

DRUGS (3)
  1. OCELLA [Suspect]
     Route: 048
     Dates: start: 20080710, end: 20080828
  2. YAZ [Suspect]
  3. YASMIN [Suspect]
     Route: 048
     Dates: start: 20080710, end: 20080828

REACTIONS (1)
  - PULMONARY EMBOLISM [None]
